FAERS Safety Report 14002970 (Version 1)
Quarter: 2017Q3

REPORT INFORMATION
  Report Type: Other
  Country: DK (occurrence: DK)
  Receive Date: 20170922
  Receipt Date: 20170922
  Transmission Date: 20171128
  Serious: Yes (Death)
  Sender: FDA-Public Use
  Company Number: DK-TAKEDA-2017TEU003999

PATIENT
  Age: 60 Year
  Sex: Male
  Weight: 109 kg

DRUGS (14)
  1. ADALAT [Concomitant]
     Active Substance: NIFEDIPINE
     Indication: RAYNAUD^S PHENOMENON
     Dosage: 20 MG, QD
     Route: 048
     Dates: start: 20161208
  2. SPIOLTO RESPIMAT [Concomitant]
     Active Substance: OLODATEROL HYDROCHLORIDE\TIOTROPIUM BROMIDE MONOHYDRATE
     Indication: CHRONIC OBSTRUCTIVE PULMONARY DISEASE
     Dosage: UNK UNK, QD
     Route: 055
     Dates: start: 20160330
  3. VIPIDIA [Suspect]
     Active Substance: ALOGLIPTIN BENZOATE
     Indication: TYPE 2 DIABETES MELLITUS
     Dosage: 25 MG, QD
     Route: 048
     Dates: start: 20170823, end: 20170824
  4. SYMBICORT [Concomitant]
     Active Substance: BUDESONIDE\FORMOTEROL FUMARATE DIHYDRATE
     Indication: ASTHMA
     Dosage: UNK UNK, BID
     Route: 055
     Dates: start: 20161006
  5. METFORMIN BLUEFISH                 /00082702/ [Concomitant]
     Active Substance: METFORMIN HYDROCHLORIDE
     Indication: DIABETES MELLITUS
     Dosage: STYRKE: 1000 MG
     Route: 048
     Dates: start: 20170620
  6. FURIX [Concomitant]
     Active Substance: FUROSEMIDE
     Indication: DIURETIC THERAPY
     Dosage: 40 MG, BID
     Route: 048
     Dates: start: 20160218
  7. ATORVASTATIN KRKA [Concomitant]
     Active Substance: ATORVASTATIN
     Indication: HYPERCHOLESTEROLAEMIA
     Dosage: 80 MG, QD
     Route: 048
     Dates: start: 20170620
  8. CIALIS [Concomitant]
     Active Substance: TADALAFIL
     Indication: ERECTILE DYSFUNCTION
     Dosage: 20MG, UNK
     Route: 048
     Dates: start: 20170530
  9. KALEORID [Concomitant]
     Active Substance: POTASSIUM CHLORIDE
     Indication: HYPOCALCAEMIA
     Dosage: 1500 MG, BID
     Route: 048
     Dates: start: 20160218
  10. DIGOXIN DAK [Concomitant]
     Active Substance: DIGOXIN
     Indication: ARRHYTHMIA
     Dosage: 250 UG, QD
     Route: 048
     Dates: start: 20160825
  11. MAREVAN [Concomitant]
     Active Substance: WARFARIN SODIUM
     Indication: THROMBOSIS PROPHYLAXIS
     Dosage: UNK
     Route: 048
     Dates: start: 20160822
  12. RAMIPRIL AUROBINDO [Concomitant]
     Active Substance: RAMIPRIL
     Indication: HYPERTENSION
     Dosage: 10 MG, QD
     Route: 048
     Dates: start: 20161221
  13. BRICANYL [Concomitant]
     Active Substance: TERBUTALINE SULFATE
     Indication: BRONCHOSPASM
     Dosage: 0.5 MG/DOSE,UNK
     Route: 055
     Dates: start: 20170818
  14. METOPROLOLSUCCINAT HEXAL [Concomitant]
     Active Substance: METOPROLOL SUCCINATE
     Indication: ARRHYTHMIA
     Dosage: 75 MG, BID
     Route: 048
     Dates: start: 20160824

REACTIONS (1)
  - Death [Fatal]

NARRATIVE: CASE EVENT DATE: 20170824
